FAERS Safety Report 8218214-1 (Version None)
Quarter: 2012Q1

REPORT INFORMATION
  Report Type: 
  Country: None (occurrence: None)
  Receive Date: 20120316
  Receipt Date: 20120316
  Transmission Date: 20120608
  Serious: No
  Sender: FDA-Public Use
  Company Number: None

PATIENT
  Age: 37 Year
  Sex: Male
  Weight: 79.5 kg

DRUGS (1)
  1. RISPERIDONE [Suspect]
     Dosage: 50 MG OTHER SQ
     Route: 058
     Dates: start: 20090416

REACTIONS (1)
  - DEVICE MALFUNCTION [None]
